FAERS Safety Report 5118494-5 (Version None)
Quarter: 2006Q3

REPORT INFORMATION
  Report Type: 
  Country: None (occurrence: None)
  Receive Date: 20060927
  Receipt Date: 20060918
  Transmission Date: 20061208
  Serious: Yes (Other)
  Sender: FDA-Public Use
  Company Number: TPA2006A01557

PATIENT
  Sex: Female

DRUGS (2)
  1. ACTOPLUS MET [Suspect]
     Indication: DIABETES MELLITUS NON-INSULIN-DEPENDENT
     Dosage: PER ORAL
     Route: 048
  2. METFORMIN HCL [Concomitant]

REACTIONS (5)
  - DYSPNOEA [None]
  - RASH [None]
  - THROAT TIGHTNESS [None]
  - URTICARIA [None]
  - WHEEZING [None]
